FAERS Safety Report 6158056-4 (Version None)
Quarter: 2009Q2

REPORT INFORMATION
  Report Type: 
  Country: None (occurrence: None)
  Receive Date: 20090414
  Receipt Date: 20090414
  Transmission Date: 20091009
  Serious: Yes (Hospitalization, Other)
  Sender: FDA-Public Use
  Company Number: None

PATIENT
  Sex: Female
  Weight: 54.4316 kg

DRUGS (5)
  1. BANZEL [Suspect]
     Indication: EPILEPSY
     Dosage: 200MG TWICE A DAY 047
     Dates: start: 20090214, end: 20090219
  2. ACETAZOLAMIDE [Concomitant]
  3. LAMOTRIGINE [Concomitant]
  4. PEGANONE [Concomitant]
  5. VNS IMPLANT [Concomitant]

REACTIONS (3)
  - DYSPNOEA [None]
  - URINARY TRACT INFECTION [None]
  - URTICARIA [None]
